FAERS Safety Report 6208681 (Version 3)
Quarter: 2014Q2

REPORT INFORMATION
  Report Type: Spontaneous
  Country: FR (occurrence: FR)
  Receive Date: 20010319
  Receipt Date: 20140401
  Transmission Date: 20141212
  Serious: Yes (Hospitalization)
  Sender: FDA-Public Use
  Company Number: FR-PFIZER INC-2001047561FR

PATIENT
  Age: 36 Day
  Sex: Male
  Weight: 1.2 kg

DRUGS (7)
  1. ALDACTONE [Suspect]
     Dosage: UNK
     Dates: end: 20010206
  2. DOPRAM [Suspect]
     Dosage: 0.3 MG/KG/HOUR
     Route: 042
  3. DOPRAM [Suspect]
     Dosage: 0.5 MG/KG/HOUR
     Route: 042
  4. DOPRAM [Suspect]
     Dosage: 4 MG/KG, EVERY 6 HOURS
     Route: 048
     Dates: end: 20010206
  5. LASILIX [Suspect]
     Dosage: UNK
  6. RANIPLEX [Suspect]
     Dosage: 5 MG/KG/24 HOURS
     Route: 042
     Dates: end: 20010206
  7. CAFFEINE [Concomitant]
     Dosage: UNK

REACTIONS (1)
  - Electrocardiogram QT prolonged [Not Recovered/Not Resolved]
